FAERS Safety Report 11490867 (Version 2)
Quarter: 2016Q4

REPORT INFORMATION
  Report Type: Spontaneous
  Country: US (occurrence: US)
  Receive Date: 20150910
  Receipt Date: 20161028
  Transmission Date: 20170206
  Serious: Yes (Other)
  Sender: FDA-Public Use
  Company Number: US-ELI_LILLY_AND_COMPANY-US201509001210

PATIENT
  Sex: Female
  Weight: 108.84 kg

DRUGS (4)
  1. IBUPROFEN. [Concomitant]
     Active Substance: IBUPROFEN
     Dosage: 800 MG, UNKNOWN
     Route: 048
  2. CYMBALTA [Suspect]
     Active Substance: DULOXETINE HYDROCHLORIDE
     Dosage: 60 MG, QD
     Route: 065
  3. CYMBALTA [Suspect]
     Active Substance: DULOXETINE HYDROCHLORIDE
     Indication: PRODUCT USED FOR UNKNOWN INDICATION
     Dosage: UNK, UNKNOWN
     Route: 065
  4. FETZIMA [Suspect]
     Active Substance: LEVOMILNACIPRAN HYDROCHLORIDE
     Indication: PRODUCT USED FOR UNKNOWN INDICATION
     Dosage: 40 MG, UNKNOWN
     Route: 065
     Dates: start: 201501

REACTIONS (36)
  - Cold sweat [Unknown]
  - Coordination abnormal [Unknown]
  - Disturbance in attention [Unknown]
  - Oropharyngeal pain [Unknown]
  - Dysphonia [Unknown]
  - Feeling abnormal [Unknown]
  - Vertigo [Unknown]
  - Fatigue [Unknown]
  - Suicidal ideation [Unknown]
  - Paraesthesia [Unknown]
  - Dizziness [Unknown]
  - Hyperhidrosis [Unknown]
  - Palpitations [Unknown]
  - Depression [Unknown]
  - Bipolar disorder [Unknown]
  - Hypersomnia [Unknown]
  - Weight increased [Unknown]
  - Abnormal behaviour [Unknown]
  - Weight abnormal [Unknown]
  - Nausea [Unknown]
  - Tremor [Unknown]
  - Vomiting [Unknown]
  - Diarrhoea [Unknown]
  - Mood swings [Unknown]
  - Influenza [Unknown]
  - Sexual dysfunction [Unknown]
  - Enuresis [Unknown]
  - Appetite disorder [Unknown]
  - Insomnia [Unknown]
  - Nightmare [Unknown]
  - Pollakiuria [Unknown]
  - Generalised anxiety disorder [Unknown]
  - Pain [Unknown]
  - Asthenia [Unknown]
  - Obsessive thoughts [Unknown]
  - Drug withdrawal syndrome [Unknown]
